FAERS Safety Report 6139730-2 (Version None)
Quarter: 2009Q2

REPORT INFORMATION
  Report Type: 
  Country: None (occurrence: None)
  Receive Date: 20090401
  Receipt Date: 20090326
  Transmission Date: 20091009
  Serious: Yes (Death)
  Sender: FDA-Public Use
  Company Number: US-AVENTIS-200912462US

PATIENT
  Sex: Female
  Weight: 106 kg

DRUGS (1)
  1. LOVENOX [Suspect]
     Route: 058

REACTIONS (2)
  - DRUG INEFFECTIVE [None]
  - PULMONARY EMBOLISM [None]
